FAERS Safety Report 14063726 (Version 1)
Quarter: 2017Q4

REPORT INFORMATION
  Report Type: Spontaneous
  Country: CA (occurrence: CA)
  Receive Date: 20171009
  Receipt Date: 20171009
  Transmission Date: 20180321
  Serious: Yes (Hospitalization)
  Sender: FDA-Public Use
  Company Number: CA-PFIZER INC-2017394606

PATIENT
  Age: 65 Year
  Sex: Male

DRUGS (15)
  1. JARDIANCE [Concomitant]
     Active Substance: EMPAGLIFLOZIN
  2. METFORMIN [Concomitant]
     Active Substance: METFORMIN HYDROCHLORIDE
  3. WARFARIN [Concomitant]
     Active Substance: WARFARIN
  4. BYSTOLIC [Concomitant]
     Active Substance: NEBIVOLOL HYDROCHLORIDE
  5. FLOMAX [Concomitant]
     Active Substance: TAMSULOSIN HYDROCHLORIDE
  6. GABAPENTIN. [Concomitant]
     Active Substance: GABAPENTIN
  7. KCL [Concomitant]
     Active Substance: POTASSIUM CHLORIDE
  8. COVERSYL /00790702/ [Concomitant]
     Active Substance: PERINDOPRIL
  9. ESBRIET [Concomitant]
     Active Substance: PIRFENIDONE
  10. REVATIO [Suspect]
     Active Substance: SILDENAFIL CITRATE
     Indication: PULMONARY HYPERTENSION
     Dosage: 20 MG, 3X/DAY
     Route: 048
     Dates: start: 20170410
  11. ZAROXOLYN [Concomitant]
     Active Substance: METOLAZONE
  12. FUROSEMIDE. [Concomitant]
     Active Substance: FUROSEMIDE
  13. GLICLAZIDE [Concomitant]
     Active Substance: GLICLAZIDE
  14. SIMVASTATIN. [Concomitant]
     Active Substance: SIMVASTATIN
  15. VITAMIN D3 [Concomitant]
     Active Substance: CHOLECALCIFEROL

REACTIONS (2)
  - Hypoxia [Unknown]
  - Dyspnoea [Unknown]
